FAERS Safety Report 15060055 (Version 1)
Quarter: 2018Q2

REPORT INFORMATION
  Report Type: Report from Study
  Country: TW (occurrence: TW)
  Receive Date: 20180625
  Receipt Date: 20180625
  Transmission Date: 20180711
  Serious: Yes (Death, Hospitalization)
  Sender: FDA-Public Use
  Company Number: TW-MYLANLABS-2018M1044502

PATIENT
  Age: 51 Year
  Sex: Male

DRUGS (5)
  1. FOLINIC ACID [Suspect]
     Active Substance: LEUCOVORIN
     Indication: THYMOMA MALIGNANT
     Dosage: A TOTAL OF 10 COURSES
     Route: 065
     Dates: start: 2012
  2. DEXAMETHASONE. [Suspect]
     Active Substance: DEXAMETHASONE
     Indication: PROPHYLAXIS OF NAUSEA AND VOMITING
     Route: 065
     Dates: start: 2012
  3. ENOXAPARIN [Concomitant]
     Active Substance: ENOXAPARIN
     Indication: PRODUCT USED FOR UNKNOWN INDICATION
     Dosage: DAILY
     Route: 058
     Dates: start: 2012
  4. CISPLATIN. [Suspect]
     Active Substance: CISPLATIN
     Indication: THYMOMA MALIGNANT
     Dosage: A TOTAL OF 10 COURSES, EVERY 4 WEEKS
     Route: 065
     Dates: start: 2012
  5. FLUOROURACIL. [Suspect]
     Active Substance: FLUOROURACIL
     Indication: THYMOMA MALIGNANT
     Dosage: A TOTAL OF 10 COURSES
     Route: 065
     Dates: start: 2012

REACTIONS (2)
  - Osteonecrosis [Recovered/Resolved]
  - Gait disturbance [Recovered/Resolved]

NARRATIVE: CASE EVENT DATE: 201211
